FAERS Safety Report 9307626 (Version 2)
Quarter: 2013Q3

REPORT INFORMATION
  Report Type: Spontaneous
  Country: US (occurrence: US)
  Receive Date: 20130524
  Receipt Date: 20130712
  Transmission Date: 20140515
  Serious: No
  Sender: FDA-Public Use
  Company Number: US-PFIZER INC-2013155917

PATIENT
  Age: 70 Year
  Sex: Male

DRUGS (3)
  1. LIPITOR [Suspect]
     Dosage: UNK
  2. CODEINE [Suspect]
     Dosage: UNK
  3. COZAAR [Suspect]
     Dosage: UNK

REACTIONS (5)
  - Drug hypersensitivity [Unknown]
  - Contrast media allergy [Unknown]
  - Pain [Unknown]
  - Rash [Unknown]
  - Cough [Unknown]
